FAERS Safety Report 11780370 (Version 1)
Quarter: 2015Q4

REPORT INFORMATION
  Report Type: Spontaneous
  Country: US (occurrence: US)
  Receive Date: 20151126
  Receipt Date: 20151126
  Transmission Date: 20160305
  Serious: No
  Sender: FDA-Public Use
  Company Number: US-JNJFOC-20151009764

PATIENT
  Age: 55 Year
  Sex: Male
  Weight: 64.41 kg

DRUGS (11)
  1. MOTRIN IB [Suspect]
     Active Substance: IBUPROFEN
     Indication: PAIN
     Route: 048
     Dates: start: 20150924
  2. DILANTIN [Concomitant]
     Active Substance: PHENYTOIN
     Indication: EPILEPSY
     Route: 065
  3. PRIMIDONE. [Concomitant]
     Active Substance: PRIMIDONE
     Indication: EPILEPSY
     Route: 065
  4. LOSARTAN. [Concomitant]
     Active Substance: LOSARTAN
     Indication: HYPERTENSION
     Route: 065
  5. AZATHIOPRINE. [Concomitant]
     Active Substance: AZATHIOPRINE
     Indication: COLITIS
     Route: 065
  6. PANTOPRAZOLE [Concomitant]
     Active Substance: PANTOPRAZOLE SODIUM
     Indication: COLITIS
     Route: 065
  7. REMICADE [Concomitant]
     Active Substance: INFLIXIMAB
     Dosage: MAX DOSE
     Route: 048
     Dates: start: 2015
  8. TYLENOL [Concomitant]
     Active Substance: ACETAMINOPHEN
     Indication: PAIN
     Route: 065
  9. REMICADE [Concomitant]
     Active Substance: INFLIXIMAB
     Route: 048
     Dates: start: 2015, end: 2015
  10. MOTRIN IB [Suspect]
     Active Substance: IBUPROFEN
     Indication: SWELLING
     Route: 048
     Dates: start: 20150924
  11. REMICADE [Concomitant]
     Active Substance: INFLIXIMAB
     Route: 048
     Dates: start: 2013

REACTIONS (3)
  - Product use issue [Unknown]
  - Drug ineffective for unapproved indication [Unknown]
  - Poor quality sleep [Unknown]

NARRATIVE: CASE EVENT DATE: 20150924
